FAERS Safety Report 17496108 (Version 4)
Quarter: 2020Q2

REPORT INFORMATION
  Report Type: Spontaneous
  Country: US (occurrence: US)
  Receive Date: 20200304
  Receipt Date: 20200626
  Transmission Date: 20200713
  Serious: Yes (Hospitalization, Other)
  Sender: FDA-Public Use
  Company Number: US-PFIZER INC-2020095812

PATIENT
  Age: 70 Year
  Sex: Female
  Weight: 115 kg

DRUGS (7)
  1. XELJANZ [Suspect]
     Active Substance: TOFACITINIB CITRATE
     Indication: COLITIS ULCERATIVE
  2. PREDNISONE. [Concomitant]
     Active Substance: PREDNISONE
     Dosage: 1 DF, 1X/DAY (1 TAB ONCE DAILY)
     Route: 048
  3. LEVOTHYROXINE. [Concomitant]
     Active Substance: LEVOTHYROXINE
     Indication: HYPOTHYROIDISM
     Dosage: 75 UG, 1X/DAY,(75 MCG 1 TAB, ORAL, ONCE DAILY)
     Route: 048
  4. XELJANZ [Suspect]
     Active Substance: TOFACITINIB CITRATE
     Indication: PROCTITIS ULCERATIVE
     Dosage: 5 MG, 2X/DAY
     Route: 048
     Dates: start: 20200219, end: 20200225
  5. BIOTIN [Concomitant]
     Active Substance: BIOTIN
     Dosage: 5000 UG, 1X/DAY,(5,000 MCG 1 TAB, ORAL, ONCE DAILY, WITH MEALS)
     Route: 048
  6. FLAX [Concomitant]
     Dosage: 1 DF,(1 CAP ORAL)
     Route: 048
  7. PREDNISONE. [Concomitant]
     Active Substance: PREDNISONE
     Indication: PROCTITIS ULCERATIVE
     Dosage: 10 MG

REACTIONS (20)
  - Red blood cell count decreased [Unknown]
  - Deep vein thrombosis [Unknown]
  - Abdominal pain [Unknown]
  - Peripheral swelling [Unknown]
  - Haemoglobin decreased [Unknown]
  - Monocyte percentage decreased [Unknown]
  - Clostridium difficile infection [Recovered/Resolved]
  - Fatigue [Recovering/Resolving]
  - Hypercoagulation [Unknown]
  - Blood glucose increased [Unknown]
  - Normocytic anaemia [Unknown]
  - Mean cell haemoglobin concentration decreased [Unknown]
  - Platelet count increased [Unknown]
  - Xanthelasma [Unknown]
  - Vitamin D deficiency [Unknown]
  - Haematocrit decreased [Unknown]
  - Pyrexia [Recovering/Resolving]
  - Body temperature decreased [Recovering/Resolving]
  - Memory impairment [Unknown]
  - Red cell distribution width increased [Unknown]

NARRATIVE: CASE EVENT DATE: 2020
